FAERS Safety Report 19745574 (Version 2)
Quarter: 2021Q3

REPORT INFORMATION
  Report Type: Report from Study
  Country: US (occurrence: US)
  Receive Date: 20210825
  Receipt Date: 20210901
  Transmission Date: 20211014
  Serious: Yes (Hospitalization)
  Sender: FDA-Public Use
  Company Number: US-ROCHE-2895359

PATIENT
  Age: 52 Year
  Sex: Female

DRUGS (9)
  1. FARICIMAB. [Suspect]
     Active Substance: FARICIMAB
     Indication: DIABETIC RETINAL OEDEMA
     Dosage: START DATE OF MOST RECENT DOSE OF STUDY DRUG?PRIOR TO AE/SAE 28/MAY/2021, 12:23PM (6MG)
     Route: 050
     Dates: start: 20210506
  2. RANIBIZUMAB. [Suspect]
     Active Substance: RANIBIZUMAB
     Indication: DIABETIC RETINAL OEDEMA
     Dosage: DATE OF MOST RECENT DOSE OF RANIBIZUMAB (6 MG) PRIOR TO AE: 28?MAY?2021 12:45 PM
     Route: 050
     Dates: start: 20210506
  3. ATORVASTATIN [Concomitant]
     Active Substance: ATORVASTATIN
     Indication: HYPERLIPIDAEMIA
     Route: 048
     Dates: start: 20190613
  4. LISINOPRIL. [Concomitant]
     Active Substance: LISINOPRIL
     Indication: HYPERTENSION
     Route: 048
     Dates: start: 2020
  5. METFORMIN [Concomitant]
     Active Substance: METFORMIN HYDROCHLORIDE
     Indication: TYPE 2 DIABETES MELLITUS
     Dates: start: 1999
  6. AMLODIPINE [Concomitant]
     Active Substance: AMLODIPINE BESYLATE
     Indication: HYPERTENSION
     Route: 048
     Dates: start: 2013
  7. LANTUS SOLOSTAR [Concomitant]
     Active Substance: INSULIN GLARGINE
     Indication: TYPE 2 DIABETES MELLITUS
     Route: 058
     Dates: start: 20180416
  8. PFIZER?BIONTECH COVID?19 VACCINE [Concomitant]
     Active Substance: TOZINAMERAN
     Route: 030
     Dates: start: 20210806, end: 20210806
  9. IBUPROFEN. [Concomitant]
     Active Substance: IBUPROFEN
     Indication: ARTHRALGIA
     Route: 048
     Dates: start: 20210407, end: 20210528

REACTIONS (1)
  - Cellulitis [Recovering/Resolving]

NARRATIVE: CASE EVENT DATE: 20210607
